FAERS Safety Report 7453587-9 (Version None)
Quarter: 2011Q2

REPORT INFORMATION
  Report Type: 
  Country: None (occurrence: None)
  Receive Date: 20110502
  Receipt Date: 20110207
  Transmission Date: 20111010
  Serious: Yes (Other)
  Sender: FDA-Public Use
  Company Number: US-BAYER-201026763NA

PATIENT
  Age: 19 Year
  Sex: Female
  Weight: 57 kg

DRUGS (13)
  1. YASMIN [Suspect]
     Route: 048
     Dates: start: 20050201, end: 20050401
  2. ACCUTANE [Concomitant]
  3. PROTONIX [Concomitant]
     Dosage: DAILY
  4. DILAUDID [Concomitant]
     Dosage: 8 MG (DAILY DOSE), BID,
  5. VICODIN [Concomitant]
  6. PHENERGAN HCL [Concomitant]
  7. PEPCID [Concomitant]
  8. YASMIN [Suspect]
     Indication: ORAL CONTRACEPTION
     Dates: start: 20050701, end: 20051201
  9. YAZ [Suspect]
     Indication: ORAL CONTRACEPTION
     Route: 048
     Dates: start: 20071101, end: 20080701
  10. YAZ [Suspect]
     Indication: ACNE
  11. REGLAN [Concomitant]
  12. SOTRET [Concomitant]
     Indication: ACNE
     Dosage: DAILY
  13. ULTRAM [Concomitant]

REACTIONS (6)
  - CHOLELITHIASIS [None]
  - ABDOMINAL PAIN [None]
  - NAUSEA [None]
  - VOMITING [None]
  - MURPHY'S SIGN POSITIVE [None]
  - CHOLECYSTITIS ACUTE [None]
